FAERS Safety Report 8416053-X (Version None)
Quarter: 2012Q2

REPORT INFORMATION
  Report Type: 
  Country: None (occurrence: None)
  Receive Date: 20120606
  Receipt Date: 20120529
  Transmission Date: 20120825
  Serious: Yes (Other)
  Sender: FDA-Public Use
  Company Number: US-ROCHE-1064512

PATIENT
  Sex: Female

DRUGS (3)
  1. XOLAIR [Suspect]
     Indication: ASTHMA
  2. XOLAIR [Suspect]
     Indication: SINUSITIS
     Route: 058
     Dates: start: 20110822
  3. SINUS RINSE (UNK INGREDIENTS) [Concomitant]

REACTIONS (4)
  - SINUSITIS [None]
  - BLOOD PRESSURE INCREASED [None]
  - HYPERTENSION [None]
  - INJECTION SITE DISCOMFORT [None]
